FAERS Safety Report 6099410-9 (Version None)
Quarter: 2009Q1

REPORT INFORMATION
  Report Type: 
  Country: None (occurrence: None)
  Receive Date: 20090226
  Receipt Date: 20090216
  Transmission Date: 20090719
  Serious: Yes (Other)
  Sender: FDA-Public Use
  Company Number: 2009AP000607

PATIENT
  Age: 55 Year
  Sex: Female

DRUGS (7)
  1. ALENDRONATE SODIUM [Suspect]
     Indication: OSTEOPOROSIS
     Dosage: 10 MG;QD; 70 MG;QW;
  2. ALENDRONATE SODIUM [Suspect]
     Indication: OSTEOPOROSIS
     Dosage: 10 MG;QD; 70 MG;QW;
  3. CALCIUM [Concomitant]
  4. ERGOCALCIFEROL [Concomitant]
  5. VENLAFAXINE HCL [Concomitant]
  6. MULTI-VITAMINS [Concomitant]
  7. EVENING PRIMROSE OIL [Concomitant]

REACTIONS (2)
  - FOCAL SEGMENTAL GLOMERULOSCLEROSIS [None]
  - HYPERTENSION [None]
